FAERS Safety Report 21635953 (Version 1)
Quarter: 2022Q4

REPORT INFORMATION
  Report Type: Spontaneous
  Country: US (occurrence: US)
  Receive Date: 20221123
  Receipt Date: 20221123
  Transmission Date: 20230112
  Serious: No
  Sender: FDA-Public Use
  Company Number: US-GLENMARK PHARMACEUTICALS-2022GMK072703

PATIENT

DRUGS (3)
  1. ZONISAMIDE [Suspect]
     Active Substance: ZONISAMIDE
     Indication: Tremor
     Dosage: UNK
     Route: 048
  2. LABETALOL HYDROCHLORIDE [Concomitant]
     Active Substance: LABETALOL HYDROCHLORIDE
     Indication: Hypertension
     Dosage: 300 MILLIGRAM, BID
     Route: 065
  3. HYDROCHLOROTHIAZIDE\LISINOPRIL [Concomitant]
     Active Substance: HYDROCHLOROTHIAZIDE\LISINOPRIL
     Indication: Hypertension
     Dosage: UNK UNK, BID (20-25MG TABLET)
     Route: 065

REACTIONS (6)
  - Balance disorder [Recovered/Resolved]
  - Fear of falling [Recovered/Resolved]
  - Product use in unapproved indication [Unknown]
  - Recalled product administered [Unknown]
  - Somnolence [Recovered/Resolved]
  - Dizziness [Recovered/Resolved]
